FAERS Safety Report 25055853 (Version 1)
Quarter: 2025Q1

REPORT INFORMATION
  Report Type: Spontaneous
  Country: GR (occurrence: GR)
  Receive Date: 20250309
  Receipt Date: 20250309
  Transmission Date: 20250409
  Serious: Yes (Other)
  Sender: MACLEODS
  Company Number: GR-MLMSERVICE-20250217-PI415826-00312-3

PATIENT

DRUGS (3)
  1. ESCITALOPRAM [Suspect]
     Active Substance: ESCITALOPRAM OXALATE
     Indication: Product used for unknown indication
     Route: 065
  2. TESTOSTERONE [Suspect]
     Active Substance: TESTOSTERONE
     Indication: Klinefelter^s syndrome
     Route: 065
  3. TESTOSTERONE [Suspect]
     Active Substance: TESTOSTERONE
     Route: 065

REACTIONS (4)
  - Unmasking of previously unidentified disease [Recovered/Resolved]
  - Condition aggravated [Recovered/Resolved]
  - Brugada syndrome [Recovered/Resolved]
  - Loss of consciousness [Recovered/Resolved]
